FAERS Safety Report 5101427-5 (Version None)
Quarter: 2006Q3

REPORT INFORMATION
  Report Type: 
  Country: None (occurrence: None)
  Receive Date: 20060911
  Receipt Date: 20060901
  Transmission Date: 20061208
  Serious: Yes (Other)
  Sender: FDA-Public Use
  Company Number: JP-GLAXOSMITHKLINE-B0436882A

PATIENT
  Age: 39 Year
  Sex: Male

DRUGS (7)
  1. EPIVIR [Suspect]
     Indication: HIV INFECTION
     Route: 048
     Dates: start: 19991213
  2. ZERIT [Suspect]
     Indication: HIV INFECTION
     Dosage: 80MG PER DAY
     Route: 048
     Dates: start: 19990121, end: 20050623
  3. VIRAMUNE [Suspect]
     Indication: HIV INFECTION
     Route: 048
     Dates: start: 19991213
  4. GASTER [Concomitant]
     Indication: GASTRITIS
     Dosage: 20MG PER DAY
     Route: 065
     Dates: start: 20040401, end: 20050920
  5. MARZULENE S [Concomitant]
     Indication: GASTRITIS
     Dosage: .67G TWICE PER DAY
     Route: 048
     Dates: start: 20040401, end: 20050630
  6. ZIAGEN [Concomitant]
     Indication: HIV INFECTION
     Route: 048
     Dates: start: 20050624
  7. TAKEPRON [Concomitant]
     Indication: GASTRITIS
     Dosage: 30MG PER DAY
     Route: 048
     Dates: start: 20060306

REACTIONS (1)
  - RENAL IMPAIRMENT [None]
